FAERS Safety Report 17092860 (Version 2)
Quarter: 2019Q4

REPORT INFORMATION
  Report Type: Spontaneous
  Country: MX (occurrence: MX)
  Receive Date: 20191129
  Receipt Date: 20191216
  Transmission Date: 20200122
  Serious: Yes (Other)
  Sender: FDA-Public Use
  Company Number: MX-LUPIN PHARMACEUTICALS INC.-2019-07891

PATIENT
  Age: 5 Year
  Sex: Female

DRUGS (3)
  1. BETAMETHASONE. [Suspect]
     Active Substance: BETAMETHASONE
     Indication: DERMATITIS ATOPIC
     Dosage: UNK
     Route: 061
  2. HYDROCORTISONE BUTYRATE. [Suspect]
     Active Substance: HYDROCORTISONE BUTYRATE
     Indication: DERMATITIS ATOPIC
     Dosage: UNK
     Route: 061
  3. BECLOMETASONE DIPROPIONATE;CLOTRIMAZOLE;GENTAMICIN SULFATE [Suspect]
     Active Substance: BECLOMETHASONE\CLOTRIMAZOLE\GENTAMICIN
     Indication: DERMATITIS ATOPIC
     Dosage: UNK UNK, BID
     Route: 065

REACTIONS (1)
  - Tinea infection [Recovered/Resolved]
